FAERS Safety Report 24823886 (Version 1)
Quarter: 2025Q1

REPORT INFORMATION
  Report Type: Spontaneous
  Country: TH (occurrence: TH)
  Receive Date: 20250109
  Receipt Date: 20250109
  Transmission Date: 20250408
  Serious: No
  Sender: ALKEM
  Company Number: TH-ALKEM LABORATORIES LIMITED-TH-ALKEM-2024-04778

PATIENT
  Age: 12 Year
  Sex: Female

DRUGS (1)
  1. DEFERASIROX [Suspect]
     Active Substance: DEFERASIROX
     Indication: Thalassaemia beta
     Dosage: 3850 MILLIGRAM/KILOGRAM, BID
     Route: 065

REACTIONS (2)
  - Hypertransaminasaemia [Unknown]
  - Therapy non-responder [Unknown]
